FAERS Safety Report 9934215 (Version 2)
Quarter: 2014Q1

REPORT INFORMATION
  Report Type: Spontaneous
  Country: US (occurrence: US)
  Receive Date: 20140228
  Receipt Date: 20140228
  Transmission Date: 20141002
  Serious: No
  Sender: FDA-Public Use
  Company Number: US-ABBVIE-13P-163-1172538-00

PATIENT
  Sex: Male
  Weight: 68.1 kg

DRUGS (4)
  1. ANDROGEL [Suspect]
     Indication: BLOOD TESTOSTERONE DECREASED
     Dosage: 2 PUMPS
     Route: 061
     Dates: start: 2011, end: 2011
  2. ANDROGEL [Suspect]
     Dosage: 3 PUMPS
     Route: 061
     Dates: start: 2011
  3. ANDROGEL [Suspect]
     Indication: BLOOD TESTOSTERONE DECREASED
     Dosage: PAST DRUG
     Route: 061
  4. SYNTHROID [Concomitant]
     Indication: HYPOTHYROIDISM

REACTIONS (3)
  - Blood creatine phosphokinase increased [Not Recovered/Not Resolved]
  - Blood testosterone decreased [Not Recovered/Not Resolved]
  - Muscle spasms [Not Recovered/Not Resolved]
